FAERS Safety Report 4649696-X (Version None)
Quarter: 2005Q2

REPORT INFORMATION
  Report Type: 
  Country: None (occurrence: None)
  Receive Date: 20050502
  Receipt Date: 20041206
  Transmission Date: 20051028
  Serious: Yes (Death, Hospitalization)
  Sender: FDA-Public Use
  Company Number: US-2004-BP-13256BP

PATIENT
  Sex: Male

DRUGS (4)
  1. AGGRENOX [Suspect]
     Indication: CEREBROVASCULAR ACCIDENT PROPHYLAXIS
     Route: 048
     Dates: start: 20040701
  2. AGGRENOX [Suspect]
     Indication: TRANSIENT ISCHAEMIC ATTACK
  3. NORVASC [Concomitant]
  4. LIPITOR [Concomitant]

REACTIONS (1)
  - THROMBOTIC THROMBOCYTOPENIC PURPURA [None]
